FAERS Safety Report 16832376 (Version 1)
Quarter: 2019Q3

REPORT INFORMATION
  Report Type: Spontaneous
  Country: US (occurrence: US)
  Receive Date: 20190920
  Receipt Date: 20190920
  Transmission Date: 20191005
  Serious: No
  Sender: FDA-Public Use
  Company Number: US-BRAINTREE LABORATORIES-180433

PATIENT
  Age: 77 Year
  Sex: Female
  Weight: 86.18 kg

DRUGS (1)
  1. SUPREP BOWEL PREP [Suspect]
     Active Substance: MAGNESIUM SULFATE\POTASSIUM SULFATE\SODIUM SULFATE
     Indication: COLONOSCOPY
     Dosage: ~1.5X6OZ. BOTTLE
     Route: 048
     Dates: start: 20180823, end: 20180824

REACTIONS (9)
  - Gastrooesophageal reflux disease [None]
  - Cough [None]
  - Sneezing [None]
  - Dyspnoea [None]
  - Pulmonary congestion [None]
  - Throat irritation [None]
  - Nasal pruritus [None]
  - Vomiting [None]
  - Rhinorrhoea [None]

NARRATIVE: CASE EVENT DATE: 20180823
